FAERS Safety Report 16201226 (Version 1)
Quarter: 2019Q2

REPORT INFORMATION
  Report Type: Other
  Country: CN (occurrence: CN)
  Receive Date: 20190416
  Receipt Date: 20190416
  Transmission Date: 20190711
  Serious: Yes (Hospitalization)
  Sender: FDA-Public Use
  Company Number: CN-JIANGSU HENGRUI MEDICINE CO., LTD.-2065858

PATIENT
  Age: 55 Year
  Sex: Male
  Weight: 47 kg

DRUGS (3)
  1. SODIUM CHLORIDE. [Concomitant]
     Active Substance: SODIUM CHLORIDE
     Route: 041
     Dates: start: 20181218, end: 20181218
  2. DOCETAXEL INJECTION USP, 20 MG/0.5 ML, SINGLE-DOSE VIAL, TWO-VIAL FORM [Suspect]
     Active Substance: DOCETAXEL
     Indication: NASOPHARYNGEAL CANCER
     Route: 041
     Dates: start: 20181218, end: 20181218
  3. LOBAPLATIN FOR INJECTION [Suspect]
     Active Substance: LOBAPLATIN
     Route: 041
     Dates: start: 20181218, end: 20181218

REACTIONS (3)
  - Bone marrow failure [Recovering/Resolving]
  - Cytopenia [Recovering/Resolving]
  - Stomatitis [Recovering/Resolving]

NARRATIVE: CASE EVENT DATE: 20181224
